FAERS Safety Report 22916991 (Version 3)
Quarter: 2023Q4

REPORT INFORMATION
  Report Type: Report from Study
  Country: US (occurrence: US)
  Receive Date: 20230907
  Receipt Date: 20231121
  Transmission Date: 20240110
  Serious: No
  Sender: FDA-Public Use
  Company Number: US-002147023-NVSC2023US193347

PATIENT
  Sex: Female

DRUGS (1)
  1. KESIMPTA [Suspect]
     Active Substance: OFATUMUMAB
     Indication: Relapsing multiple sclerosis
     Dosage: UNK
     Route: 065
     Dates: start: 20221123

REACTIONS (9)
  - COVID-19 [Unknown]
  - Back pain [Unknown]
  - Pyrexia [Unknown]
  - Headache [Unknown]
  - Sneezing [Unknown]
  - Oropharyngeal pain [Unknown]
  - Cough [Unknown]
  - Intervertebral disc protrusion [Recovering/Resolving]
  - Weight increased [Unknown]
